FAERS Safety Report 5787635-9 (Version None)
Quarter: 2008Q2

REPORT INFORMATION
  Report Type: 
  Country: None (occurrence: None)
  Receive Date: 20080623
  Receipt Date: 20080623
  Transmission Date: 20081010
  Serious: Yes (Death)
  Sender: FDA-Public Use
  Company Number: None

PATIENT
  Age: 80 Year
  Sex: Male
  Weight: 65.7716 kg

DRUGS (1)
  1. DIGITEK ACTAVIS GROUP [Suspect]
     Indication: CARDIAC DISORDER
     Dosage: 0.125MG. TAKE ONCE DAILY
     Dates: start: 20070604, end: 20080329

REACTIONS (4)
  - CARDIAC FAILURE CONGESTIVE [None]
  - CARDIO-RESPIRATORY ARREST [None]
  - HYPOTENSION [None]
  - RENAL FAILURE [None]
